FAERS Safety Report 25167745 (Version 3)
Quarter: 2025Q2

REPORT INFORMATION
  Report Type: Spontaneous
  Country: US (occurrence: US)
  Receive Date: 20250407
  Receipt Date: 20250424
  Transmission Date: 20250717
  Serious: Yes (Hospitalization, Other)
  Sender: PFIZER
  Company Number: US-PFIZER INC-202500070302

PATIENT
  Age: 77 Year
  Sex: Male
  Weight: 72.57 kg

DRUGS (1)
  1. VYNDAMAX [Suspect]
     Active Substance: TAFAMIDIS
     Indication: Cardiac amyloidosis
     Dosage: 61 MG, 1X/DAY
     Dates: start: 202001

REACTIONS (12)
  - Pleural effusion [Recovering/Resolving]
  - Neuropathy peripheral [Not Recovered/Not Resolved]
  - Cardiac failure acute [Not Recovered/Not Resolved]
  - Renal injury [Unknown]
  - Pneumothorax [Unknown]
  - Gastrointestinal amyloidosis [Unknown]
  - Gastrointestinal haemorrhage [Unknown]
  - Aspiration pleural cavity [Unknown]
  - Illness [Unknown]
  - Oedema peripheral [Recovering/Resolving]
  - Pain in extremity [Unknown]
  - Skin lesion [Unknown]

NARRATIVE: CASE EVENT DATE: 20220101
